FAERS Safety Report 24642529 (Version 11)
Quarter: 2025Q1

REPORT INFORMATION
  Report Type: Spontaneous
  Country: US (occurrence: US)
  Receive Date: 20241120
  Receipt Date: 20250204
  Transmission Date: 20250409
  Serious: Yes (Hospitalization, Other)
  Sender: PFIZER
  Company Number: US-PFIZER INC-202400302056

PATIENT
  Age: 69 Year
  Sex: Female
  Weight: 168 kg

DRUGS (1)
  1. IBRANCE [Suspect]
     Active Substance: PALBOCICLIB
     Indication: Breast cancer female
     Route: 048
     Dates: start: 2023

REACTIONS (8)
  - Cerebrovascular accident [Recovering/Resolving]
  - Pneumonitis [Not Recovered/Not Resolved]
  - Oral pain [Not Recovered/Not Resolved]
  - Vision blurred [Not Recovered/Not Resolved]
  - Cough [Not Recovered/Not Resolved]
  - Fatigue [Unknown]
  - Malaise [Unknown]
  - Oral discomfort [Unknown]

NARRATIVE: CASE EVENT DATE: 20230101
